FAERS Safety Report 20165322 (Version 4)
Quarter: 2022Q1

REPORT INFORMATION
  Report Type: Spontaneous
  Country: US (occurrence: US)
  Receive Date: 20211209
  Receipt Date: 20220124
  Transmission Date: 20220423
  Serious: Yes (Other)
  Sender: FDA-Public Use
  Company Number: US-PFIZER INC-202101664085

PATIENT
  Age: 68 Year
  Sex: Female

DRUGS (1)
  1. PREMARIN [Suspect]
     Active Substance: ESTROGENS, CONJUGATED
     Dosage: 0.625 MG/G (QUANTITY FOR 90 DAYS: 15 G)

REACTIONS (4)
  - Vaginal disorder [Unknown]
  - Pelvic floor dysfunction [Unknown]
  - Impaired healing [Unknown]
  - Mental impairment [Unknown]
